FAERS Safety Report 6316481-2 (Version None)
Quarter: 2009Q3

REPORT INFORMATION
  Report Type: 
  Country: None (occurrence: None)
  Receive Date: 20090820
  Receipt Date: 20090817
  Transmission Date: 20100115
  Serious: Yes (Other)
  Sender: FDA-Public Use
  Company Number: US-BAYER-200930126NA

PATIENT
  Age: 22 Year
  Sex: Female
  Weight: 51 kg

DRUGS (4)
  1. YAZ [Suspect]
     Indication: CONTRACEPTION
  2. PROZAC [Concomitant]
  3. RESPIROL [Concomitant]
  4. KLONOPIN [Concomitant]

REACTIONS (2)
  - AORTIC ANEURYSM [None]
  - SYNCOPE [None]
